FAERS Safety Report 5453180-3 (Version None)
Quarter: 2007Q3

REPORT INFORMATION
  Report Type: 
  Country: None (occurrence: None)
  Receive Date: 20070914
  Receipt Date: 20070903
  Transmission Date: 20080115
  Serious: Yes (Hospitalization)
  Sender: FDA-Public Use
  Company Number: FR-PFIZER INC-2007074529

PATIENT
  Sex: Female

DRUGS (8)
  1. LYRICA [Suspect]
     Indication: ALLODYNIA
     Route: 048
     Dates: start: 20070712, end: 20070716
  2. CLONAZEPAM [Suspect]
     Indication: PAIN
     Dosage: TEXT:3 DF; 3DF-FREQ:DAILY
     Route: 048
     Dates: start: 20070713, end: 20070717
  3. TRAMADOL HCL [Suspect]
     Indication: PAIN
     Dosage: TEXT:1 DF; 2 DF
     Route: 048
     Dates: start: 20070712, end: 20070717
  4. KETOPROFEN [Suspect]
     Route: 048
     Dates: start: 20070711, end: 20070716
  5. ESOMEPRAZOLE MAGNESIUM [Suspect]
     Route: 048
     Dates: start: 20070711, end: 20070718
  6. GABAPENTIN [Concomitant]
     Route: 048
     Dates: start: 20070711, end: 20070101
  7. GABAPENTIN [Concomitant]
     Route: 048
     Dates: start: 20070716
  8. PARACETAMOL [Concomitant]
     Route: 048

REACTIONS (2)
  - ENCEPHALOPATHY [None]
  - HYPERAMMONAEMIA [None]
